FAERS Safety Report 6211828-X (Version None)
Quarter: 2009Q2

REPORT INFORMATION
  Report Type: 
  Country: None (occurrence: None)
  Receive Date: 20090528
  Receipt Date: 20090514
  Transmission Date: 20091009
  Serious: Yes (Hospitalization)
  Sender: FDA-Public Use
  Company Number: 2009-194300-NL

PATIENT
  Age: 56 Year
  Sex: Male

DRUGS (18)
  1. ORGARAN [Suspect]
     Indication: DISSEMINATED INTRAVASCULAR COAGULATION
     Dosage: 2500 IU INTRAVENOUS DRIP 3 WEEKS 3 DAYS 2500 INTRAVENOUS DRIP 1 WEEK 1 DAY
     Route: 041
     Dates: start: 20090311, end: 20090403
  2. ORGARAN [Suspect]
     Indication: DISSEMINATED INTRAVASCULAR COAGULATION
     Dosage: 2500 IU INTRAVENOUS DRIP 3 WEEKS 3 DAYS 2500 INTRAVENOUS DRIP 1 WEEK 1 DAY
     Route: 041
     Dates: start: 20090409, end: 20090416
  3. MEROPEN [Concomitant]
  4. PROPOFOL [Concomitant]
  5. ASPARA POTASSIUM [Concomitant]
  6. FLUMAZENIL [Concomitant]
  7. ELASPOL [Concomitant]
  8. SERENACE [Concomitant]
  9. SOLU-MEDROL [Concomitant]
  10. DORMICUM /GFR/ [Concomitant]
  11. LEPETAN [Concomitant]
  12. OXYCONTIN [Concomitant]
  13. VANCOMYCIN HCL [Concomitant]
  14. ROPION [Concomitant]
  15. PENTCILLIN [Concomitant]
  16. DIFLUCAN [Concomitant]
  17. KIPRES [Concomitant]
  18. ZOSYN [Concomitant]

REACTIONS (2)
  - PLATELET COUNT DECREASED [None]
  - PYREXIA [None]
